FAERS Safety Report 5979202-9 (Version None)
Quarter: 2008Q4

REPORT INFORMATION
  Report Type: 
  Country: None (occurrence: None)
  Receive Date: 20081204
  Receipt Date: 20080516
  Transmission Date: 20090506
  Serious: No
  Sender: FDA-Public Use
  Company Number: US-ABBOTT-08P-163-0452324-00

PATIENT
  Sex: Female
  Weight: 59.928 kg

DRUGS (3)
  1. TRICOR [Suspect]
     Indication: DRUG USE FOR UNKNOWN INDICATION
     Dates: start: 20040101, end: 20080511
  2. UNKNOWN RED BLOOD SHOT [Concomitant]
     Indication: WALDENSTROM'S MACROGLOBULINAEMIA
  3. SOTALOL HCL [Concomitant]
     Indication: DRUG USE FOR UNKNOWN INDICATION

REACTIONS (1)
  - DYSPNOEA [None]
